FAERS Safety Report 9888278 (Version 2)
Quarter: 2014Q1

REPORT INFORMATION
  Report Type: Spontaneous
  Country: US (occurrence: US)
  Receive Date: 20140211
  Receipt Date: 20140325
  Transmission Date: 20141002
  Serious: Yes (Other)
  Sender: FDA-Public Use
  Company Number: US-PFIZER INC-2014035586

PATIENT
  Age: 63 Year
  Sex: Female
  Weight: 48.5 kg

DRUGS (7)
  1. ADVIL [Suspect]
     Indication: PAIN
     Dosage: UNK
  2. METHOCARBAMOL [Suspect]
     Dosage: UNK
  3. GABAPENTIN [Suspect]
     Dosage: UNK
  4. DEPIXOL [Suspect]
     Dosage: UNK
  5. EXTRA STRENGTH TYLENOL [Suspect]
     Dosage: UNK
  6. ALEVE [Suspect]
     Dosage: UNK
  7. AMITRIPTYLINE [Suspect]
     Dosage: UNK

REACTIONS (6)
  - Gastric perforation [Not Recovered/Not Resolved]
  - Spinal disorder [Not Recovered/Not Resolved]
  - Irritability [Not Recovered/Not Resolved]
  - Tremor [Not Recovered/Not Resolved]
  - Paraesthesia [Not Recovered/Not Resolved]
  - Drug ineffective [Unknown]
